FAERS Safety Report 10599732 (Version 1)
Quarter: 2014Q4

REPORT INFORMATION
  Report Type: Other
  Country: US (occurrence: US)
  Receive Date: 20141121
  Receipt Date: 20141121
  Transmission Date: 20150529
  Serious: Yes (Hospitalization)
  Sender: FDA-Public Use
  Company Number: US-SPECTRUM PHARMACEUTICALS, INC.-14-B-US-00353

PATIENT
  Age: 62 Year
  Sex: Male

DRUGS (16)
  1. VELCADE [Suspect]
     Active Substance: BORTEZOMIB
     Dosage: 1 MG/M2, C10D1
     Route: 042
     Dates: start: 20120827, end: 20120827
  2. VELCADE [Suspect]
     Active Substance: BORTEZOMIB
     Dosage: 1.3 MG/M2, C10D4
     Route: 042
     Dates: start: 20120830, end: 20120830
  3. TADALAFIL [Concomitant]
     Active Substance: TADALAFIL
     Indication: PRODUCT USED FOR UNKNOWN INDICATION
     Dosage: 0.25 OTHER, 1 IN 4 DAY
     Route: 048
  4. BELINOSTAT [Suspect]
     Active Substance: BELINOSTAT
     Dosage: 638 MG/M2, C10, D1-3
     Route: 042
     Dates: start: 20120827, end: 20120829
  5. DEXAMETHASONE. [Concomitant]
     Active Substance: DEXAMETHASONE
     Indication: PRODUCT USED FOR UNKNOWN INDICATION
     Dosage: 1.142 MG, 2 IN 1 WEEK
     Route: 048
     Dates: start: 20120608
  6. BELINOSTAT [Suspect]
     Active Substance: BELINOSTAT
     Indication: CHRONIC MYELOID LEUKAEMIA
     Dosage: 850 MG/M2, D1-5, D8-12 OF A 21 DAY CYCLE
     Route: 042
     Dates: start: 20120116
  7. BELINOSTAT [Suspect]
     Active Substance: BELINOSTAT
     Dosage: 850 MG/M2, C10D4 AND FOLLOWING
     Dates: start: 20140830, end: 20140831
  8. DEFEROXAMINE [Concomitant]
     Active Substance: DEFEROXAMINE\DEFEROXAMINE MESYLATE
     Indication: PRODUCT USED FOR UNKNOWN INDICATION
     Dosage: 2000 MG, 12 HR INFUSION
     Route: 042
     Dates: start: 20120823
  9. VELCADE [Suspect]
     Active Substance: BORTEZOMIB
     Indication: CHRONIC MYELOID LEUKAEMIA
     Dosage: 1.3 MG/M2, D1,4,8,11 OF 21 DAY CYCLE
     Route: 042
     Dates: start: 20120116
  10. CHLORHEXIDINE [Concomitant]
     Active Substance: CHLORHEXIDINE
     Indication: PRODUCT USED FOR UNKNOWN INDICATION
     Dosage: 60 MG/ML, 4 TIMES A DAY
     Route: 061
     Dates: start: 20120731
  11. RITALIN [Concomitant]
     Active Substance: METHYLPHENIDATE HYDROCHLORIDE
     Indication: PRODUCT USED FOR UNKNOWN INDICATION
     Dosage: UNK
  12. ACICLOVIR [Concomitant]
     Active Substance: ACYCLOVIR
     Indication: PRODUCT USED FOR UNKNOWN INDICATION
     Dosage: 800 MG, BID
     Route: 048
  13. ALLOPURINOL. [Concomitant]
     Active Substance: ALLOPURINOL
     Indication: PRODUCT USED FOR UNKNOWN INDICATION
     Dosage: 300 MG, QD
     Route: 048
  14. DIPHENHYDRAMINE [Concomitant]
     Active Substance: DIPHENHYDRAMINE
     Indication: PRODUCT USED FOR UNKNOWN INDICATION
     Dosage: 25 MG, QD
     Route: 048
     Dates: start: 20140426
  15. PREVIDENT [Concomitant]
     Active Substance: SODIUM FLUORIDE
     Indication: PRODUCT USED FOR UNKNOWN INDICATION
     Dosage: UNK, QD
     Route: 061
     Dates: start: 20120731
  16. PROCHLORPERAZINE. [Concomitant]
     Active Substance: PROCHLORPERAZINE
     Indication: PROPHYLACTIC CHEMOTHERAPY
     Dosage: 100 MG, UNK
     Route: 048
     Dates: start: 20120828

REACTIONS (2)
  - Ventricular extrasystoles [Recovered/Resolved]
  - Electrocardiogram ST segment depression [Recovered/Resolved]

NARRATIVE: CASE EVENT DATE: 20120831
